FAERS Safety Report 9746038 (Version 1)
Quarter: 2013Q4

REPORT INFORMATION
  Report Type: Spontaneous
  Country: IT (occurrence: IT)
  Receive Date: 20131211
  Receipt Date: 20131211
  Transmission Date: 20140711
  Serious: Yes (Hospitalization)
  Sender: FDA-Public Use
  Company Number: IT-SA-2013SA125383

PATIENT
  Age: 92 Year
  Sex: Female

DRUGS (6)
  1. FUROSEMIDE [Suspect]
     Indication: PRODUCT USED FOR UNKNOWN INDICATION
     Route: 048
  2. LANOXIN [Suspect]
     Indication: TACHYARRHYTHMIA
     Route: 048
     Dates: start: 20130101, end: 20130419
  3. COUMADIN [Concomitant]
  4. CITALOPRAM [Concomitant]
  5. VALSARTAN [Concomitant]
  6. MULTIVITAMIN AND MINERAL SUPPLEMENT [Concomitant]

REACTIONS (2)
  - Cardiac failure [Recovering/Resolving]
  - Overdose [Unknown]
